FAERS Safety Report 17662389 (Version 4)
Quarter: 2021Q4

REPORT INFORMATION
  Report Type: Report from Study
  Country: DE (occurrence: DE)
  Receive Date: 20200413
  Receipt Date: 20211021
  Transmission Date: 20220303
  Serious: Yes (Hospitalization)
  Sender: FDA-Public Use
  Company Number: DE-JNJFOC-20200405391

PATIENT
  Age: 6 Decade
  Sex: Female

DRUGS (12)
  1. SIMPONI [Suspect]
     Active Substance: GOLIMUMAB
     Indication: Rheumatoid arthritis
     Route: 058
     Dates: start: 201607
  2. SIMPONI [Suspect]
     Active Substance: GOLIMUMAB
     Route: 058
     Dates: start: 201802
  3. METHOTREXATE (METHOTREXATE SODIUM) [Suspect]
     Active Substance: METHOTREXATE SODIUM
     Indication: Rheumatoid arthritis
     Dates: start: 201607
  4. LEFEX                              /01278901/ [Concomitant]
     Indication: Rheumatoid arthritis
  5. CIMZIA [Concomitant]
     Active Substance: CERTOLIZUMAB PEGOL
     Dates: start: 201212, end: 201403
  6. HUMIRA [Concomitant]
     Active Substance: ADALIMUMAB
     Dates: start: 201406, end: 201410
  7. TOCILIZUMAB [Concomitant]
     Active Substance: TOCILIZUMAB
     Dates: start: 201411, end: 201606
  8. ENBREL [Concomitant]
     Active Substance: ETANERCEPT
     Dates: start: 201403, end: 201406
  9. CHOLECALCIFEROL [Concomitant]
     Active Substance: CHOLECALCIFEROL
     Dosage: 20,000 I.U.
  10. LISINOPRIL [Concomitant]
     Active Substance: LISINOPRIL
     Dates: start: 201812
  11. METAMIZOLE [Concomitant]
     Active Substance: METAMIZOLE
     Dosage: AS NEEDED
     Dates: start: 201801
  12. MIRTAZAPINE [Concomitant]
     Active Substance: MIRTAZAPINE
     Dates: start: 201811

REACTIONS (2)
  - Oesophageal varices haemorrhage [Recovered/Resolved]
  - Cirrhosis alcoholic [Recovered/Resolved]

NARRATIVE: CASE EVENT DATE: 20190330
